FAERS Safety Report 5153282-5 (Version None)
Quarter: 2006Q4

REPORT INFORMATION
  Report Type: 
  Country: None (occurrence: None)
  Receive Date: 20061117
  Receipt Date: 20050125
  Transmission Date: 20070319
  Serious: Yes (Hospitalization)
  Sender: FDA-Public Use
  Company Number: FR-SANOFI-SYNTHELABO-F01200500152

PATIENT
  Sex: Male
  Weight: 76 kg

DRUGS (6)
  1. GAVISCON [Concomitant]
     Indication: DYSPHAGIA
     Dosage: 3 UNIT
     Route: 048
     Dates: start: 20050118
  2. EFFERALGAN [Concomitant]
     Indication: DYSPHAGIA
     Dosage: 500 MG
     Route: 048
     Dates: start: 20050118
  3. ZOFRAN [Concomitant]
     Indication: PROPHYLAXIS OF NAUSEA AND VOMITING
     Dosage: 8 MG
     Route: 042
     Dates: start: 20050117, end: 20050117
  4. LEUCOVORIN CALCIUM [Suspect]
     Route: 042
     Dates: start: 20050117, end: 20050118
  5. FLUOROURACIL [Suspect]
     Dosage: 374 MG BOLUS AND 1122 MG CONTINUOUS INFUSION, Q2W
     Route: 042
     Dates: start: 20050117, end: 20050118
  6. OXALIPLATIN [Suspect]
     Indication: OESOPHAGEAL CARCINOMA
     Route: 042
     Dates: start: 20050117, end: 20050117

REACTIONS (1)
  - DYSPHAGIA [None]
